FAERS Safety Report 12831742 (Version 1)
Quarter: 2016Q4

REPORT INFORMATION
  Report Type: Report from Study
  Country: US (occurrence: US)
  Receive Date: 20161010
  Receipt Date: 20161010
  Transmission Date: 20170207
  Serious: Yes (Hospitalization, Other)
  Sender: FDA-Public Use
  Company Number: US-ROCHE-1287115

PATIENT
  Age: 67 Year
  Sex: Female
  Weight: 53.1 kg

DRUGS (10)
  1. VELIPARIB [Suspect]
     Active Substance: VELIPARIB
     Indication: FALLOPIAN TUBE CANCER
     Dosage: ON DAYS 1-21 CYCLE 1 (CYCLE= 21 DAYS) DOSE LEVEL 7?TOTAL DOSE ADMINISTERED: 1500 MG?DATE OF LAST DOS
     Route: 048
     Dates: start: 20130624
  2. VELIPARIB [Suspect]
     Active Substance: VELIPARIB
     Dosage: DATE OF LAST DOSE ADMINISTERED: 02/AUG/2013
     Route: 048
     Dates: start: 20130626
  3. NEULASTA [Concomitant]
     Active Substance: PEGFILGRASTIM
     Route: 065
  4. VELIPARIB [Suspect]
     Active Substance: VELIPARIB
     Dosage: DATE OF LAST DOSE ADMINISTERED: 02/AUG/2013
     Route: 048
     Dates: start: 20130731
  5. CARBOPLATIN. [Suspect]
     Active Substance: CARBOPLATIN
     Dosage: AUC = 6 IV OVER 30 MINS. ON DAY 1 CYCLES 2-6?TOTAL DOSE ADMINISTERED: 390 MG?DATE OF LAST DOSE ADMIN
     Route: 042
     Dates: start: 20130626
  6. BEVACIZUMAB [Suspect]
     Active Substance: BEVACIZUMAB
     Indication: FALLOPIAN TUBE CANCER
     Dosage: OVER 30-90 MINS ON DAY 1 (CYCLES 2-6) ?TOTAL DOSE ADMINISTERED: 800 MG?DATE OF LAST DOSE ADMINISTERE
     Route: 042
     Dates: start: 20130626
  7. PACLITAXEL. [Suspect]
     Active Substance: PACLITAXEL
     Indication: FALLOPIAN TUBE CANCER
     Dosage: OVER 3 HRS ON DAY 1 CYCLE 1 (CYCLE= 21 DAYS)?TOTAL DOSE ADMINISTERED: 270 MG?DATE OF LAST DOSE ADMIN
     Route: 042
     Dates: start: 20130624
  8. PACLITAXEL. [Suspect]
     Active Substance: PACLITAXEL
     Dosage: OVER 3 HRS ON DAY 1 CYCLES 2-6?TOTAL DOSE ADMINISTERED: 270 MG?DATE OF LAST DOSE ADMINISTERED: 31/JU
     Route: 042
     Dates: start: 20130626
  9. BEVACIZUMAB [Suspect]
     Active Substance: BEVACIZUMAB
     Dosage: TOTAL DOSE ADMINISTERED: 800 MG?DATE OF LAST DOSE ADMINISTERED: 02AUG//2013
     Route: 042
     Dates: start: 20130624
  10. CARBOPLATIN. [Suspect]
     Active Substance: CARBOPLATIN
     Indication: FALLOPIAN TUBE CANCER
     Dosage: AUC = 6 IV OVER 30 MINS. ON DAY 1 CYCLES 2-6?TOTAL DOSE ADMINISTERED: 390 MG?DATE OF LAST DOSE ADMIN
     Route: 042
     Dates: start: 20130624

REACTIONS (7)
  - Vomiting [Recovered/Resolved]
  - Urinary tract infection [Unknown]
  - Anaemia [Unknown]
  - Vomiting [Unknown]
  - Hypokalaemia [Unknown]
  - Urinary tract infection [Not Recovered/Not Resolved]
  - Neutrophil count decreased [Unknown]

NARRATIVE: CASE EVENT DATE: 20150803
